FAERS Safety Report 5352642-7 (Version None)
Quarter: 2007Q2

REPORT INFORMATION
  Report Type: 
  Country: None (occurrence: None)
  Receive Date: 20070611
  Receipt Date: 20070530
  Transmission Date: 20071010
  Serious: Yes (Hospitalization)
  Sender: FDA-Public Use
  Company Number: US-ROCHE-500141

PATIENT
  Age: 46 Year
  Sex: Female

DRUGS (6)
  1. XELODA [Suspect]
     Indication: BREAST CANCER
     Route: 065
     Dates: start: 20070503
  2. LAPATINIB [Suspect]
     Indication: BREAST CANCER
     Route: 048
     Dates: start: 20070503
  3. FRUSEMIDE [Concomitant]
  4. WARFARIN SODIUM [Concomitant]
  5. PANTOPRAZOLE SODIUM [Concomitant]
  6. CYCLOBENZAPRINE HCL [Concomitant]

REACTIONS (3)
  - MUSCLE SPASMS [None]
  - PRURITUS [None]
  - RASH [None]
